FAERS Safety Report 7615746-1 (Version None)
Quarter: 2011Q3

REPORT INFORMATION
  Report Type: 
  Country: None (occurrence: None)
  Receive Date: 20110711
  Receipt Date: 20110627
  Transmission Date: 20111222
  Serious: Yes (Other)
  Sender: FDA-Public Use
  Company Number: AUR-APL-2011-02178

PATIENT
  Age: 85 Year
  Sex: Female
  Weight: 73.5 kg

DRUGS (8)
  1. PERCOCET [Concomitant]
  2. RANITIDINE [Concomitant]
  3. LISINOPRIL [Suspect]
     Indication: HYPERTENSION
     Dosage: 20 MG (10 MG,2 IN 1 D),ORAL
     Route: 048
  4. AMIODARONE HYDROCHLORIDE [Suspect]
     Indication: ATRIAL FIBRILLATION
     Dosage: (200 MG, 1 D),ORAL
     Route: 048
     Dates: start: 20110101
  5. PREDNISONE [Concomitant]
  6. AMLODIPINE [Suspect]
     Indication: PRODUCT USED FOR UNKNOWN INDICATION
     Dosage: (5 MG,1 D),ORAL
     Route: 048
  7. PLAVIX [Suspect]
     Indication: ATRIAL FIBRILLATION
     Dosage: 75 MG (75 MG, 1 IN 1 D),ORAL
  8. SYNTHROID [Concomitant]

REACTIONS (3)
  - MALAISE [None]
  - HYPERHIDROSIS [None]
  - FEELING HOT [None]
